FAERS Safety Report 6884853-3 (Version None)
Quarter: 2010Q3

REPORT INFORMATION
  Report Type: 
  Country: None (occurrence: None)
  Receive Date: 20100729
  Receipt Date: 20070828
  Transmission Date: 20110219
  Serious: No
  Sender: FDA-Public Use
  Company Number: US-PFIZER INC-2007072284

PATIENT
  Sex: Female

DRUGS (10)
  1. CELEBREX [Suspect]
  2. AZITHROMYCIN [Suspect]
     Dates: start: 20070601
  3. SPIRONOLACTONE [Suspect]
  4. SYNTHROID [Suspect]
     Indication: HYPOTHYROIDISM
  5. AMLODIPINE [Concomitant]
  6. DILTIAZEM HYDROCHLORIDE [Concomitant]
  7. DICYCLOMINE [Concomitant]
  8. NEXIUM [Concomitant]
  9. GLYCOPYRROLATE [Concomitant]
  10. FOSAMAX [Concomitant]

REACTIONS (1)
  - ALOPECIA [None]
